FAERS Safety Report 23602910 (Version 7)
Quarter: 2024Q3

REPORT INFORMATION
  Report Type: Report from Study
  Country: FR (occurrence: FR)
  Receive Date: 20240306
  Receipt Date: 20240709
  Transmission Date: 20241016
  Serious: Yes (Hospitalization, Other)
  Sender: BIOGEN
  Company Number: FR-BIOGEN-2023BI01231033

PATIENT
  Age: 70 Year
  Sex: Female
  Weight: 66 kg

DRUGS (6)
  1. TOFERSEN [Suspect]
     Active Substance: TOFERSEN
     Indication: Amyotrophic lateral sclerosis
     Dosage: 1 LOADING DOSE ON D0, D14 AND D28, THEN 1 MAINTENANCE DOSE EVERY 28 DAYS
     Route: 050
     Dates: start: 20230926
  2. PAROXETINE [Concomitant]
     Active Substance: PAROXETINE
     Indication: Product used for unknown indication
     Route: 050
  3. .ALPHA.-TOCOPHEROL ACETATE, D- [Concomitant]
     Active Substance: .ALPHA.-TOCOPHEROL ACETATE, D-
     Indication: Product used for unknown indication
     Route: 050
  4. RILUZOLE [Concomitant]
     Active Substance: RILUZOLE
     Indication: Amyotrophic lateral sclerosis
     Route: 050
     Dates: start: 20220808
  5. RILUZOLE [Concomitant]
     Active Substance: RILUZOLE
     Route: 050
  6. sodium phenylbutyrate and taurursodiol [Concomitant]
     Indication: Product used for unknown indication
     Route: 050

REACTIONS (10)
  - Ankle fracture [Not Recovered/Not Resolved]
  - Fall [Recovered/Resolved]
  - Obstructive sleep apnoea syndrome [Not Recovered/Not Resolved]
  - Mobility decreased [Unknown]
  - Poor quality sleep [Unknown]
  - Micturition urgency [Not Recovered/Not Resolved]
  - Urinary incontinence [Not Recovered/Not Resolved]
  - Dyspnoea exertional [Not Recovered/Not Resolved]
  - Emotional distress [Unknown]
  - Weight increased [Unknown]

NARRATIVE: CASE EVENT DATE: 20231101
